FAERS Safety Report 23747616 (Version 1)
Quarter: 2024Q2

REPORT INFORMATION
  Report Type: Spontaneous
  Country: US (occurrence: None)
  Receive Date: 20240415
  Receipt Date: 20240415
  Transmission Date: 20240716
  Serious: No
  Sender: FDA-Public Use
  Company Number: None

PATIENT
  Sex: Female

DRUGS (1)
  1. VERZENIO [Suspect]
     Active Substance: ABEMACICLIB
     Indication: Breast cancer female
     Dosage: FREQUENCY : TWICE A DAY;?
     Route: 048
     Dates: start: 202112

REACTIONS (7)
  - Pain in extremity [None]
  - Joint swelling [None]
  - Peripheral swelling [None]
  - Musculoskeletal stiffness [None]
  - Headache [None]
  - Aphasia [None]
  - Hallucination [None]
